FAERS Safety Report 9380904 (Version 3)
Quarter: 2013Q3

REPORT INFORMATION
  Report Type: Spontaneous
  Country: US (occurrence: US)
  Receive Date: 20130703
  Receipt Date: 20130722
  Transmission Date: 20140515
  Serious: Yes (Other)
  Sender: FDA-Public Use
  Company Number: US-JNJFOC-20130515360

PATIENT
  Age: 44 Year
  Sex: Male
  Weight: 93.44 kg

DRUGS (2)
  1. TYLENOL COLD MULTI-SYMPTOM NIGHTTIME COOL BURST [Suspect]
     Indication: RHINORRHOEA
     Dosage: 2 TABLESPOONS EVERY FOUR TO SIX HOURS
     Route: 048
     Dates: start: 20130520, end: 20130520
  2. TYLENOL COLD MULTI-SYMPTOM NIGHTTIME COOL BURST [Suspect]
     Indication: COUGH
     Dosage: 2 TABLESPOONS EVERY FOUR TO SIX HOURS
     Route: 048
     Dates: start: 20130520, end: 20130520

REACTIONS (4)
  - Loss of consciousness [Recovered/Resolved]
  - Fall [Recovering/Resolving]
  - Dizziness [Recovering/Resolving]
  - Product lot number issue [Unknown]
